FAERS Safety Report 12716941 (Version 2)
Quarter: 2016Q3

REPORT INFORMATION
  Report Type: Spontaneous
  Country: US (occurrence: US)
  Receive Date: 20160906
  Receipt Date: 20160927
  Transmission Date: 20161109
  Serious: No
  Sender: FDA-Public Use
  Company Number: US-TAKEDA-2016MPI007637

PATIENT
  Sex: Female
  Weight: 62.49 kg

DRUGS (2)
  1. NINLARO [Suspect]
     Active Substance: IXAZOMIB
     Indication: PLASMA CELL MYELOMA
     Dosage: 3.0 MG, UNK
     Route: 048
  2. REVLIMID [Suspect]
     Active Substance: LENALIDOMIDE
     Indication: PLASMA CELL MYELOMA
     Dosage: 15 MG, UNK
     Route: 048

REACTIONS (7)
  - Rash macular [Unknown]
  - Skin exfoliation [Unknown]
  - Adverse drug reaction [Unknown]
  - Laboratory test abnormal [Unknown]
  - Oral herpes [Unknown]
  - Blood disorder [Unknown]
  - Neuropathy peripheral [Unknown]
